FAERS Safety Report 16362181 (Version 1)
Quarter: 2019Q2

REPORT INFORMATION
  Report Type: Spontaneous
  Country: US (occurrence: US)
  Receive Date: 20190419
  Receipt Date: 20190419
  Transmission Date: 20190711
  Serious: Yes (Hospitalization)
  Sender: FDA-Public Use
  Company Number: None

PATIENT
  Age: 41 Year
  Sex: Female
  Weight: 72.6 kg

DRUGS (10)
  1. RITALIN [Concomitant]
     Active Substance: METHYLPHENIDATE HYDROCHLORIDE
  2. ZYPREXA [Concomitant]
     Active Substance: OLANZAPINE
  3. SINGLE AGENT 5-FU [Concomitant]
  4. METFORMIN [Concomitant]
     Active Substance: METFORMIN HYDROCHLORIDE
  5. ESTROGEL 1% [Concomitant]
  6. APIXABAN (DOSE DOUBLE-BLINDED) [Suspect]
     Active Substance: APIXABAN
     Indication: THROMBOSIS PROPHYLAXIS
     Route: 048
     Dates: start: 20190321
  7. MORPHINE [Concomitant]
     Active Substance: MORPHINE
  8. CYMBALTA [Concomitant]
     Active Substance: DULOXETINE HYDROCHLORIDE
  9. NORCO [Concomitant]
     Active Substance: ACETAMINOPHEN\HYDROCODONE BITARTRATE
  10. KENALOG 0.025% [Concomitant]

REACTIONS (2)
  - Viral upper respiratory tract infection [None]
  - Chest X-ray abnormal [None]

NARRATIVE: CASE EVENT DATE: 20190402
